FAERS Safety Report 12632425 (Version 3)
Quarter: 2016Q3

REPORT INFORMATION
  Report Type: Spontaneous
  Country: US (occurrence: US)
  Receive Date: 20160808
  Receipt Date: 20160825
  Transmission Date: 20161109
  Serious: No
  Sender: FDA-Public Use
  Company Number: US-BEH-2016062818

PATIENT
  Sex: Female
  Weight: 82.1 kg

DRUGS (23)
  1. ADVAIR HFA [Concomitant]
     Active Substance: FLUTICASONE PROPIONATE\SALMETEROL XINAFOATE
  2. DIAZEPAM. [Concomitant]
     Active Substance: DIAZEPAM
  3. MULTIPLE VITAMINS [Concomitant]
     Active Substance: VITAMINS
  4. HIZENTRA [Suspect]
     Active Substance: HUMAN IMMUNOGLOBULIN G
     Dosage: 13 G, QW
     Route: 058
  5. TRAZODONE [Concomitant]
     Active Substance: TRAZODONE HYDROCHLORIDE
  6. ACETAMINOPHEN. [Concomitant]
     Active Substance: ACETAMINOPHEN
  7. FERROUS SULFATE. [Concomitant]
     Active Substance: FERROUS SULFATE
  8. ASPIRIN EC [Concomitant]
     Active Substance: ASPIRIN
  9. LEVOTHYROXINE. [Concomitant]
     Active Substance: LEVOTHYROXINE
  10. HIZENTRA [Suspect]
     Active Substance: HUMAN IMMUNOGLOBULIN G
     Indication: IMMUNODEFICIENCY COMMON VARIABLE
     Route: 058
  11. ALPHA LIPOIC ACID [Concomitant]
     Active Substance: .ALPHA.-LIPOIC ACID
  12. PRAMIPEXOLE. [Concomitant]
     Active Substance: PRAMIPEXOLE
  13. PROAIR HFA [Concomitant]
     Active Substance: ALBUTEROL SULFATE
  14. GABAPENTIN. [Concomitant]
     Active Substance: GABAPENTIN
  15. DIPHENHYDRAMINE. [Concomitant]
     Active Substance: DIPHENHYDRAMINE
  16. HIZENTRA [Suspect]
     Active Substance: HUMAN IMMUNOGLOBULIN G
     Route: 058
  17. MIRALAX [Concomitant]
     Active Substance: POLYETHYLENE GLYCOL 3350
  18. HIZENTRA [Suspect]
     Active Substance: HUMAN IMMUNOGLOBULIN G
     Route: 058
  19. ESCITALOPRAM [Concomitant]
     Active Substance: ESCITALOPRAM OXALATE
  20. ATORVASTATIN [Concomitant]
     Active Substance: ATORVASTATIN
  21. PROBIOTIC + ACIDOPHILUS [Concomitant]
  22. FUROSEMIDE. [Concomitant]
     Active Substance: FUROSEMIDE
  23. EPIPEN [Concomitant]
     Active Substance: EPINEPHRINE

REACTIONS (3)
  - Pyrexia [Unknown]
  - Chills [Unknown]
  - Nasal congestion [Unknown]
